FAERS Safety Report 10900132 (Version 1)
Quarter: 2015Q1

REPORT INFORMATION
  Report Type: Spontaneous
  Country: US (occurrence: US)
  Receive Date: 20150310
  Receipt Date: 20150310
  Transmission Date: 20150721
  Serious: Yes (Other)
  Sender: FDA-Public Use
  Company Number: US-AMGEN-USASP2015021250

PATIENT
  Age: 62 Year
  Sex: Male

DRUGS (1)
  1. ENBREL [Suspect]
     Active Substance: ETANERCEPT
     Indication: RHEUMATOID ARTHRITIS
     Dosage: 50 MG, QWK
     Route: 065
     Dates: start: 201301

REACTIONS (4)
  - White blood cell count decreased [Not Recovered/Not Resolved]
  - Abdominal pain [Unknown]
  - Splenomegaly [Unknown]
  - Immobile [Not Recovered/Not Resolved]

NARRATIVE: CASE EVENT DATE: 201310
